FAERS Safety Report 8101807-X (Version None)
Quarter: 2012Q1

REPORT INFORMATION
  Report Type: 
  Country: None (occurrence: None)
  Receive Date: 20120131
  Receipt Date: 20120125
  Transmission Date: 20120608
  Serious: Yes (Hospitalization, Other)
  Sender: FDA-Public Use
  Company Number: PHEH2005US08930

PATIENT
  Sex: Female

DRUGS (17)
  1. AREDIA [Suspect]
     Indication: MULTIPLE MYELOMA
  2. METFORMIN HCL [Concomitant]
  3. VESICARE [Concomitant]
  4. ZOMETA [Suspect]
  5. RADIATION [Concomitant]
  6. TOLTERODINE TARTRATE [Concomitant]
  7. SERTRALINE HYDROCHLORIDE [Concomitant]
  8. NYSTATIN [Concomitant]
  9. FISH OIL [Concomitant]
  10. GUAIFENESIN [Concomitant]
  11. RANITIDINE [Concomitant]
  12. ZANTAC [Concomitant]
  13. POTASSIUM CHLORIDE [Concomitant]
  14. SPIRIVA [Concomitant]
  15. ADVAIR DISKUS 100/50 [Concomitant]
  16. FLUTICASONE PROPIONATE [Concomitant]
  17. COLACE [Concomitant]

REACTIONS (56)
  - HAEMATURIA [None]
  - ASTHMA [None]
  - GAIT DISTURBANCE [None]
  - TRICUSPID VALVE INCOMPETENCE [None]
  - PAIN [None]
  - TIBIA FRACTURE [None]
  - KERATITIS [None]
  - FOOT FRACTURE [None]
  - JOINT DISLOCATION [None]
  - FALL [None]
  - CATARACT [None]
  - GLAUCOMA [None]
  - WHEEZING [None]
  - DYSPNOEA [None]
  - HERPES ZOSTER [None]
  - FIBULA FRACTURE [None]
  - HYPOAESTHESIA [None]
  - HYPOMAGNESAEMIA [None]
  - CORNEAL OEDEMA [None]
  - ABDOMINAL DISCOMFORT [None]
  - UVEITIS [None]
  - CHRONIC OBSTRUCTIVE PULMONARY DISEASE [None]
  - PULMONARY CONGESTION [None]
  - PLEURAL EFFUSION [None]
  - VARICOSE VEIN [None]
  - JOINT SWELLING [None]
  - VISION BLURRED [None]
  - MITRAL VALVE PROLAPSE [None]
  - MASTICATION DISORDER [None]
  - ULCERATIVE KERATITIS [None]
  - HYPERCAPNIA [None]
  - EPISTAXIS [None]
  - HYPOKALAEMIA [None]
  - FEMUR FRACTURE [None]
  - GINGIVAL BLEEDING [None]
  - DRY EYE [None]
  - TACHYPNOEA [None]
  - SINUS TACHYCARDIA [None]
  - CARDIAC FAILURE CONGESTIVE [None]
  - MUSCULOSKELETAL STIFFNESS [None]
  - CALCINOSIS [None]
  - HAEMOPTYSIS [None]
  - AORTIC ARTERIOSCLEROSIS [None]
  - MUSCLE SPASMS [None]
  - OSTEONECROSIS OF JAW [None]
  - INCONTINENCE [None]
  - OEDEMA PERIPHERAL [None]
  - INSOMNIA [None]
  - NEPHROLITHIASIS [None]
  - MICROCYTIC ANAEMIA [None]
  - LOSS OF CONSCIOUSNESS [None]
  - PULMONARY FIBROSIS [None]
  - HIP FRACTURE [None]
  - ARTHRITIS [None]
  - ARTHRALGIA [None]
  - OSTEOPENIA [None]
